FAERS Safety Report 8842334 (Version 1)
Quarter: 2012Q4

REPORT INFORMATION
  Report Type: 
  Country: US (occurrence: US)
  Receive Date: 20121016
  Receipt Date: 20121016
  Transmission Date: 20130627
  Serious: Yes (Other)
  Sender: FDA-Public Use
  Company Number: US-ROCHE-1139554

PATIENT
  Sex: Female
  Weight: 50 kg

DRUGS (3)
  1. PROTROPIN [Suspect]
     Indication: BLOOD GROWTH HORMONE DECREASED
     Route: 058
     Dates: start: 19910815
  2. CYCLOSPORIN [Concomitant]
  3. PREDNISONE [Concomitant]

REACTIONS (1)
  - Inflammatory bowel disease [Unknown]
